FAERS Safety Report 22135482 (Version 1)
Quarter: 2023Q1

REPORT INFORMATION
  Report Type: Report from Study
  Country: BR (occurrence: BR)
  Receive Date: 20230324
  Receipt Date: 20230324
  Transmission Date: 20230418
  Serious: Yes (Other)
  Sender: FDA-Public Use
  Company Number: BR-JNJFOC-20230350600

PATIENT
  Age: 16 Year
  Sex: Male
  Weight: 32 kg

DRUGS (1)
  1. INFLIXIMAB [Suspect]
     Active Substance: INFLIXIMAB
     Indication: Crohn^s disease
     Route: 041

REACTIONS (7)
  - Crohn^s disease [Not Recovered/Not Resolved]
  - Epistaxis [Unknown]
  - Mouth haemorrhage [Unknown]
  - Dyspnoea [Unknown]
  - Chest pain [Unknown]
  - Rash [Unknown]
  - Off label use [Unknown]
